FAERS Safety Report 9970808 (Version 2)
Quarter: 2014Q2

REPORT INFORMATION
  Report Type: Report from Study
  Country: US (occurrence: US)
  Receive Date: 20140306
  Receipt Date: 20140411
  Transmission Date: 20141212
  Serious: Yes (Hospitalization)
  Sender: FDA-Public Use
  Company Number: US-VERTEX PHARMACEUTICALS INC-2014-001048

PATIENT
  Age: 30 Year
  Sex: Female

DRUGS (30)
  1. VX-770 [Suspect]
     Indication: CYSTIC FIBROSIS
     Dosage: 150 MG, BID
     Dates: start: 20121212
  2. ALBUTEROL [Concomitant]
     Dosage: 2 PUFF INHALED EVERY 6 HOURS
  3. AQUADEKS [Concomitant]
     Dosage: 1 DF, BID
     Route: 048
  4. AZTREONAM [Concomitant]
     Dosage: EVERY 8 HOURS X 11 DAYS
     Route: 041
  5. BACTRIM DS [Concomitant]
     Dosage: 160-800 MG, BID
     Route: 048
  6. CELEXA [Concomitant]
     Dosage: 20 MG, QD
     Route: 048
  7. CLONAZEPAM [Concomitant]
     Dosage: 0.5 MG, BID X 30 DAYS
     Route: 048
  8. COENZYME Q10 [Concomitant]
     Dosage: 50 MG, QD X 30 DAYS
     Route: 048
  9. COLISTIMETHATE [Concomitant]
     Dosage: 75 MG, BID NEBULIZED X 28 DAYS, ALTERNATE EVERY 28 DAYS WITH AZTREONAM NEBS
  10. CONCERTA [Concomitant]
     Dosage: 36 MG, QD X 30 DAYS
     Route: 048
  11. CREON [Concomitant]
     Dosage: 5 WITH MEALS, 2 WITH SNACKS
  12. DUONEB [Concomitant]
     Dosage: 3 MG, NEBULIZED BID X 30 DAYS
  13. ERGOCALCIFEROL [Concomitant]
     Dosage: 50000 UT, QW X 90 DAYS
     Route: 048
  14. FERROUS SULFATE [Concomitant]
     Dosage: 325 MG, QD
     Route: 048
  15. FLONASE [Concomitant]
     Dosage: 1-2 SPRAY QD
     Route: 045
  16. FLUCONAZOLE [Concomitant]
     Dosage: 150 MG, QD
     Route: 048
  17. LORAZEPAM [Concomitant]
     Dosage: 0.5 MG, BID, PRN
     Route: 048
  18. NECON [Concomitant]
     Dosage: 1 DF, QD
     Route: 048
  19. NEXIUM [Concomitant]
     Dosage: 40 MG, QD
     Route: 048
  20. NOVOLOG [Concomitant]
     Indication: DIABETES MELLITUS
     Route: 058
  21. OMEGA-3-ACID ETHYL ESTER [Concomitant]
     Dosage: 1000 MG, BID
     Route: 048
  22. PREDNISONE [Concomitant]
     Dosage: 15 MG, BID X 4 DAYS, 15 MG QD X 3 DAYS
  23. PULMOZYME [Concomitant]
     Dosage: 2.5 MG, QD
  24. SINGULAIR [Concomitant]
     Dosage: 10 MG, QD
     Route: 048
  25. SODIUM CHLORIDE [Concomitant]
     Dosage: 0.9 %, EVERY 4-6 HOURS
  26. TRANEXAMIC ACID [Concomitant]
     Dosage: 650 MG, BID
     Route: 048
  27. URSODIOL [Concomitant]
     Dosage: 300 MG, TID
     Route: 048
  28. VITAMIN B COMPLEX [Concomitant]
     Dosage: 1 DF, QD
     Route: 048
  29. VITAMIN K [Concomitant]
     Dosage: 5 MG, BID
     Route: 048
  30. ZYRTEC [Concomitant]
     Dosage: 20 MG, QD
     Route: 048

REACTIONS (1)
  - Pneumothorax [Recovering/Resolving]
